FAERS Safety Report 20001693 (Version 1)
Quarter: 2021Q4

REPORT INFORMATION
  Report Type: Spontaneous
  Country: US (occurrence: US)
  Receive Date: 20211027
  Receipt Date: 20211027
  Transmission Date: 20220303
  Serious: No
  Sender: FDA-Public Use
  Company Number: None

PATIENT
  Age: 63 Year
  Sex: Female
  Weight: 98.55 kg

DRUGS (1)
  1. REPATHA [Suspect]
     Active Substance: EVOLOCUMAB
     Indication: Low density lipoprotein increased
     Dosage: ?          QUANTITY:1 INJECTION(S);OTHER FREQUENCY:TWICE A MONTH;
     Route: 058
     Dates: start: 20211015, end: 20211015

REACTIONS (1)
  - Tinnitus [None]

NARRATIVE: CASE EVENT DATE: 20211015
